FAERS Safety Report 7462378-4 (Version None)
Quarter: 2011Q2

REPORT INFORMATION
  Report Type: 
  Country: None (occurrence: None)
  Receive Date: 20110506
  Receipt Date: 20110429
  Transmission Date: 20111010
  Serious: Yes (Hospitalization)
  Sender: FDA-Public Use
  Company Number: FR-SANOFI-AVENTIS-2011SA027280

PATIENT
  Age: 67 Year
  Sex: Female

DRUGS (7)
  1. ATARAX [Concomitant]
     Route: 065
  2. DEMECLOCYCLINE HCL [Suspect]
     Route: 048
     Dates: start: 20110327, end: 20110408
  3. LOVENOX [Suspect]
     Route: 058
     Dates: start: 20110329, end: 20110411
  4. AMLODIPINE BESYLATE [Suspect]
     Route: 048
     Dates: end: 20110408
  5. NICOTINE [Concomitant]
     Route: 065
     Dates: start: 20110301
  6. AMOXICILLIN AND CLAVULANATE POTASSIUM [Concomitant]
     Route: 048
     Dates: start: 20110329
  7. PARACETAMOL [Concomitant]
     Route: 065
     Dates: start: 20110101

REACTIONS (1)
  - RENAL FAILURE ACUTE [None]
